FAERS Safety Report 7293888-0 (Version None)
Quarter: 2011Q1

REPORT INFORMATION
  Report Type: 
  Country: None (occurrence: None)
  Receive Date: 20110215
  Receipt Date: 20110209
  Transmission Date: 20110831
  Serious: Yes (Hospitalization)
  Sender: FDA-Public Use
  Company Number: JP-PFIZER INC-2011002148

PATIENT
  Age: 76 Year
  Sex: Male
  Weight: 57.5 kg

DRUGS (17)
  1. PAXIL [Suspect]
     Indication: DEPRESSION
     Dosage: UNK
     Route: 048
     Dates: start: 20100729, end: 20100816
  2. ARICEPT [Concomitant]
     Indication: DEMENTIA
     Dosage: UNK
     Route: 048
  3. ASPIRIN [Concomitant]
     Indication: HYPERTENSION
     Dosage: UNK
     Route: 048
  4. TAKEPRON [Concomitant]
     Indication: GASTRITIS
     Dosage: UNK
     Route: 048
     Dates: end: 20100930
  5. BETAMETHASONE SODIUM PHOSPHATE/GENTAMICIN [Concomitant]
     Indication: ECZEMA
     Dosage: UNK
     Route: 050
     Dates: end: 20100813
  6. THYRADIN S [Concomitant]
     Indication: HYPOTHYROIDISM
     Dosage: UNK
     Route: 048
     Dates: end: 20100816
  7. ASPIRIN [Concomitant]
     Indication: THROMBOSIS PROPHYLAXIS
  8. ATELEC [Concomitant]
     Indication: HYPERTENSION
     Dosage: UNK
     Route: 048
  9. SALOBEL [Concomitant]
     Indication: HYPERURICAEMIA
     Dosage: UNK
     Route: 048
  10. LEXOTAN [Suspect]
     Indication: IRRITABILITY
     Dosage: UNK
     Route: 048
     Dates: start: 20100729, end: 20100811
  11. SENIRAN [Suspect]
     Indication: IRRITABILITY
     Dosage: UNK
     Route: 048
     Dates: start: 20100729, end: 20100810
  12. ARICEPT [Concomitant]
     Indication: DEPRESSION
  13. QUAZEPAM [Concomitant]
     Indication: INSOMNIA RELATED TO ANOTHER MENTAL CONDITION
     Dosage: UNK
     Route: 048
     Dates: end: 20100921
  14. PERSANTIN [Concomitant]
     Dosage: UNK
     Route: 048
  15. SERTRALINE HCL [Suspect]
     Indication: DEPRESSION
     Dosage: 25 MG, 1X/DAY
     Dates: start: 20100729, end: 20100812
  16. MICARDIS [Concomitant]
     Indication: HYPERTENSION
     Dosage: UNK
     Route: 048
  17. BETAMETHASONE SODIUM PHOSPHATE/GENTAMICIN [Concomitant]
     Dosage: UNK

REACTIONS (1)
  - IRRITABILITY [None]
